FAERS Safety Report 4697760-1 (Version None)
Quarter: 2005Q2

REPORT INFORMATION
  Report Type: 
  Country: None (occurrence: None)
  Receive Date: 20050119
  Receipt Date: 20050119
  Transmission Date: 20051028
  Serious: Yes (Other)
  Sender: FDA-Public Use
  Company Number: None

PATIENT
  Sex: Female
  Weight: 54.4316 kg

DRUGS (1)
  1. HALCION [Suspect]
     Dosage: 0.75MG  HS

REACTIONS (2)
  - DRUG EFFECT DECREASED [None]
  - HEADACHE [None]
